FAERS Safety Report 8471382-9 (Version None)
Quarter: 2012Q2

REPORT INFORMATION
  Report Type: 
  Country: None (occurrence: None)
  Receive Date: 20120627
  Receipt Date: 20120621
  Transmission Date: 20120825
  Serious: Yes (Other)
  Sender: FDA-Public Use
  Company Number: FR-PFIZER INC-2012092089

PATIENT
  Sex: Female

DRUGS (1)
  1. RELPAX [Suspect]
     Indication: HEADACHE
     Dosage: UNK
     Dates: start: 19950101

REACTIONS (3)
  - DRUG DEPENDENCE [None]
  - DRUG ABUSE [None]
  - MIGRAINE [None]
